FAERS Safety Report 9103736 (Version 1)
Quarter: 2013Q1

REPORT INFORMATION
  Report Type: Spontaneous
  Country: US (occurrence: US)
  Receive Date: 20130219
  Receipt Date: 20130219
  Transmission Date: 20140127
  Serious: Yes (Other)
  Sender: FDA-Public Use
  Company Number: US-PFIZER INC-9722928

PATIENT
  Age: 90 Year
  Sex: Male

DRUGS (5)
  1. ZOLOFT [Suspect]
     Indication: MAJOR DEPRESSION
     Dosage: 50 MG/DAY
  2. ZOLOFT [Suspect]
     Dosage: 150 MG/DAY
  3. ZOLOFT [Suspect]
     Dosage: 50 MG/DAY
  4. FUROSEMIDE [Concomitant]
     Indication: HYPERTENSION
     Dosage: 40 MG, UNK
  5. ENALAPRIL [Interacting]
     Indication: HYPERTENSION
     Dosage: 5 MG/DAY

REACTIONS (2)
  - Parkinsonism [Recovered/Resolved]
  - Drug ineffective [Recovering/Resolving]
